FAERS Safety Report 5632741-2 (Version None)
Quarter: 2008Q1

REPORT INFORMATION
  Report Type: 
  Country: None (occurrence: None)
  Receive Date: 20080221
  Receipt Date: 20080213
  Transmission Date: 20080703
  Serious: Yes (Death, Hospitalization)
  Sender: FDA-Public Use
  Company Number: US-JNJFOC-20080203408

PATIENT
  Sex: Female
  Weight: 90.72 kg

DRUGS (2)
  1. FENTANYL TRANSDERMAL SYSTEM [Suspect]
     Indication: PAIN
     Route: 062
  2. VICODIN [Concomitant]
     Indication: PAIN
     Route: 048

REACTIONS (3)
  - CEREBROVASCULAR ACCIDENT [None]
  - OVERDOSE [None]
  - UNEVALUABLE EVENT [None]
